FAERS Safety Report 24731810 (Version 1)
Quarter: 2024Q4

REPORT INFORMATION
  Report Type: Report from Study
  Country: BE (occurrence: BE)
  Receive Date: 20241213
  Receipt Date: 20241213
  Transmission Date: 20250115
  Serious: Yes (Hospitalization)
  Sender: ABBVIE
  Company Number: BE-ABBVIE-6042961

PATIENT
  Age: 76 Year
  Sex: Female
  Weight: 60 kg

DRUGS (8)
  1. CARBIDOPA\LEVODOPA [Suspect]
     Active Substance: CARBIDOPA\LEVODOPA
     Indication: Parkinson^s disease
     Route: 050
     Dates: start: 20191125
  2. CARBIDOPA\LEVODOPA [Suspect]
     Active Substance: CARBIDOPA\LEVODOPA
     Dosage: MORNING DOSAGE (ML): 3.0?ADDITIONAL TUBE FILING (ML): 3.0?CONTINUOUS DOSAGE (ML/H): 2.9?EXTRA DOS...
     Route: 050
     Dates: start: 20240705, end: 20240708
  3. CARBIDOPA\LEVODOPA [Suspect]
     Active Substance: CARBIDOPA\LEVODOPA
     Dosage: MORNING DOSAGE (ML): 3.0?ADDITIONAL TUBE FILING (ML): 3.0?CONTINUOUS DOSAGE (ML/H): 2.9?EXTRA DOS...
     Route: 050
     Dates: start: 20240708
  4. SEROQUEL [Concomitant]
     Active Substance: QUETIAPINE FUMARATE
     Indication: Product used for unknown indication
     Dosage: 1X 1/2 IN THE EVENING
  5. XANAX [Concomitant]
     Active Substance: ALPRAZOLAM
     Indication: Product used for unknown indication
  6. NORTRIPTYLINE [Concomitant]
     Active Substance: NORTRIPTYLINE
     Indication: Product used for unknown indication
     Dosage: 1X 2 IN THE EVENING
  7. Paroxetine 50 [Concomitant]
     Indication: Product used for unknown indication
  8. Prolopa 250 tablet. [Concomitant]
     Indication: Product used for unknown indication
     Dosage: 8 X/DAY EVERY 2 HOURS (7,9,11,13,15,17,19,21)?250 TABLETS

REACTIONS (3)
  - Device dislocation [Recovered/Resolved]
  - Stoma site infection [Unknown]
  - Stoma site erythema [Unknown]
